FAERS Safety Report 4647760-2 (Version None)
Quarter: 2005Q2

REPORT INFORMATION
  Report Type: 
  Country: None (occurrence: None)
  Receive Date: 20050427
  Receipt Date: 20050427
  Transmission Date: 20051028
  Serious: Yes (Death)
  Sender: FDA-Public Use
  Company Number: None

PATIENT
  Sex: Male
  Weight: 100.9 kg

DRUGS (2)
  1. ZOLADEX [Suspect]
     Dosage: 10.8MG EVERY 3 MONTHS
     Dates: start: 20050216, end: 20050216
  2. CASODEX [Suspect]
     Dosage: 50MG DAILY

REACTIONS (1)
  - CARDIO-RESPIRATORY ARREST [None]
